FAERS Safety Report 6416688-X (Version None)
Quarter: 2009Q4

REPORT INFORMATION
  Report Type: 
  Country: None (occurrence: None)
  Receive Date: 20091022
  Receipt Date: 20091012
  Transmission Date: 20100525
  Serious: Yes (Death)
  Sender: FDA-Public Use
  Company Number: ADE09049-L

PATIENT

DRUGS (3)
  1. CYCLOSPORINE INJECTION [Suspect]
     Indication: PROPHYLAXIS AGAINST GRAFT VERSUS HOST DISEASE
     Dosage: IV; 6MG/KG/DAY
     Route: 042
  2. METHOTREXATE SODIUM [Concomitant]
  3. MYCOPHENOLATE MOFETIL [Concomitant]

REACTIONS (1)
  - TRANSPLANT FAILURE [None]
